FAERS Safety Report 7721716-5 (Version None)
Quarter: 2011Q3

REPORT INFORMATION
  Report Type: 
  Country: None (occurrence: None)
  Receive Date: 20110831
  Receipt Date: 20110824
  Transmission Date: 20111222
  Serious: Yes (Other)
  Sender: FDA-Public Use
  Company Number: JP-GLAXOSMITHKLINE-B0742461A

PATIENT

DRUGS (3)
  1. ROCEPHIN [Concomitant]
     Route: 065
  2. VALPROATE SODIUM [Concomitant]
     Route: 048
  3. ZOVIRAX [Suspect]
     Indication: PRODUCT USED FOR UNKNOWN INDICATION
     Dosage: 1500MG PER DAY
     Route: 042

REACTIONS (1)
  - ENCEPHALOPATHY [None]
